FAERS Safety Report 5776841-5 (Version None)
Quarter: 2008Q2

REPORT INFORMATION
  Report Type: 
  Country: None (occurrence: None)
  Receive Date: 20080618
  Receipt Date: 20080611
  Transmission Date: 20081010
  Serious: Yes (Hospitalization)
  Sender: FDA-Public Use
  Company Number: GB-WATSON-2008-03580

PATIENT
  Age: 29 Year
  Sex: Female

DRUGS (1)
  1. METHYLPREDNISOLONE ACETATE (WATSON LABORATORIES) [Suspect]
     Indication: LUPUS NEPHRITIS
     Dosage: UNK
     Dates: start: 20060601

REACTIONS (6)
  - BLINDNESS CORTICAL [None]
  - GRAND MAL CONVULSION [None]
  - HEADACHE [None]
  - HYPERTONIA [None]
  - PHOTOPHOBIA [None]
  - REVERSIBLE POSTERIOR LEUKOENCEPHALOPATHY SYNDROME [None]
